APPROVED DRUG PRODUCT: DOXYCYCLINE
Active Ingredient: DOXYCYCLINE
Strength: EQ 100MG BASE
Dosage Form/Route: CAPSULE;ORAL
Application: A065041 | Product #002
Applicant: WATSON LABORATORIES INC
Approved: Apr 28, 2000 | RLD: No | RS: No | Type: DISCN